FAERS Safety Report 5474633-8 (Version None)
Quarter: 2007Q3

REPORT INFORMATION
  Report Type: 
  Country: None (occurrence: None)
  Receive Date: 20070831
  Receipt Date: 20070808
  Transmission Date: 20080115
  Serious: Yes (Life-Threatening, Hospitalization)
  Sender: FDA-Public Use
  Company Number: 261138

PATIENT
  Age: 80 Year
  Sex: Female
  Weight: 65.8 kg

DRUGS (19)
  1. NOVOLIN N [Suspect]
     Indication: INSULIN-REQUIRING TYPE II DIABETES MELLITUS
     Dosage: 31 IU, QD, SUBCUTANEOUS
     Route: 058
     Dates: start: 20060101
  2. NOVOLIN 70/30 [Suspect]
     Indication: INSULIN-REQUIRING TYPE II DIABETES MELLITUS
     Dosage: 75 IU, QD, SUBCUTANEOUS
     Route: 058
     Dates: start: 20060101, end: 20070224
  3. NOVOFINE(R) 30 (NEEDLE) [Concomitant]
  4. NOVOLOG [Concomitant]
  5. MACROBID [Concomitant]
  6. LASIX [Concomitant]
  7. LIPITOR [Concomitant]
  8. COREG [Concomitant]
  9. SENNA (SENNA ALEXANDRINA) [Concomitant]
  10. CARBIDOPA (CARBIDOPA) [Concomitant]
  11. LEVODOPA (LEVODOPA) [Concomitant]
  12. DIGOXIN (DIGOXN) [Concomitant]
  13. ASPIRIN [Concomitant]
  14. NIASPAN [Concomitant]
  15. NOVOLOG MIX 70/30 [Concomitant]
  16. POTASSIUM CHLORIDE [Concomitant]
  17. IRON (IRON) [Concomitant]
  18. CALCIUM (CALCIUM) [Concomitant]
  19. MULTIPLE VITAMINS (ASCORBIC ACID, ERGOCALCIFEROL, FOLIC ACID, RETINOL, [Concomitant]

REACTIONS (1)
  - HYPOGLYCAEMIC UNCONSCIOUSNESS [None]
